FAERS Safety Report 11037815 (Version 4)
Quarter: 2015Q3

REPORT INFORMATION
  Report Type: Spontaneous
  Country: US (occurrence: US)
  Receive Date: 20150416
  Receipt Date: 20150911
  Transmission Date: 20151125
  Serious: No
  Sender: FDA-Public Use
  Company Number: US-009507513-1504USA003563

PATIENT
  Age: 20 Year
  Sex: Female

DRUGS (1)
  1. IMPLANON [Suspect]
     Active Substance: ETONOGESTREL
     Dosage: UNK,
     Route: 030
     Dates: start: 2012

REACTIONS (6)
  - Incorrect drug administration duration [Unknown]
  - Medical device complication [Unknown]
  - Device difficult to use [Unknown]
  - Incorrect route of drug administration [Unknown]
  - Amenorrhoea [Unknown]
  - Device deployment issue [Unknown]

NARRATIVE: CASE EVENT DATE: 2012
